FAERS Safety Report 4293559-9 (Version None)
Quarter: 2004Q1

REPORT INFORMATION
  Report Type: 
  Country: None (occurrence: None)
  Receive Date: 20040210
  Receipt Date: 20040127
  Transmission Date: 20041129
  Serious: Yes (Death)
  Sender: FDA-Public Use
  Company Number: FI-JNJFOC-20040105313

PATIENT

DRUGS (2)
  1. GALANTAMINE (GALANTAMINE) TABLETS [Suspect]
     Dosage: SEE IMAGE
     Route: 048
  2. EBIXA (ALL OTHER THERAPEUTIC PRODUCTS) UNKNOWN [Suspect]
     Dosage: 5 MG, 1 IN 1 DAY

REACTIONS (3)
  - CARDIAC ARREST [None]
  - MYOCARDIAL INFARCTION [None]
  - PULMONARY EMBOLISM [None]
